FAERS Safety Report 8384437-4 (Version None)
Quarter: 2012Q2

REPORT INFORMATION
  Report Type: 
  Country: None (occurrence: None)
  Receive Date: 20120524
  Receipt Date: 20120518
  Transmission Date: 20120825
  Serious: Yes (Other)
  Sender: FDA-Public Use
  Company Number: US-GLAXOSMITHKLINE-A0978224A

PATIENT
  Age: 59 Year
  Sex: Female

DRUGS (7)
  1. FLOVENT [Suspect]
     Indication: ASTHMA
     Dosage: 1PUFF TWICE PER DAY
     Route: 055
     Dates: start: 20120420
  2. GABAPENTIN [Concomitant]
  3. PAXIL [Concomitant]
  4. LIPITOR [Concomitant]
  5. INSULIN [Concomitant]
  6. TRICOR [Concomitant]
  7. LISINOPRIL [Concomitant]

REACTIONS (2)
  - BLOOD GLUCOSE DECREASED [None]
  - PSORIASIS [None]
